FAERS Safety Report 15797777 (Version 1)
Quarter: 2019Q1

REPORT INFORMATION
  Report Type: Spontaneous
  Country: US (occurrence: US)
  Receive Date: 20190108
  Receipt Date: 20190108
  Transmission Date: 20190417
  Serious: Yes (Other)
  Sender: FDA-Public Use
  Company Number: US-PFIZER INC-2019009117

PATIENT
  Age: 65 Year
  Sex: Female

DRUGS (4)
  1. LYRICA [Suspect]
     Active Substance: PREGABALIN
     Indication: RHEUMATOID ARTHRITIS
     Dosage: UNK
     Route: 065
  2. ENBREL [Suspect]
     Active Substance: ETANERCEPT
     Indication: RHEUMATOID ARTHRITIS
     Dosage: 50 MG, QWK
     Route: 065
     Dates: start: 2003, end: 2018
  3. LOSARTAN. [Concomitant]
     Active Substance: LOSARTAN
     Dosage: UNK UNK, QD
     Route: 065
  4. NYSTATIN. [Concomitant]
     Active Substance: NYSTATIN
     Dosage: UNK UNK, QD
     Route: 065

REACTIONS (2)
  - Suicidal ideation [Unknown]
  - Lymphadenopathy [Unknown]
